FAERS Safety Report 7337080-X (Version None)
Quarter: 2011Q1

REPORT INFORMATION
  Report Type: 
  Country: None (occurrence: None)
  Receive Date: 20110224
  Receipt Date: 20110216
  Transmission Date: 20110831
  Serious: Yes (Hospitalization)
  Sender: FDA-Public Use
  Company Number: 2009AC000017

PATIENT
  Sex: Male

DRUGS (28)
  1. K-DUR [Concomitant]
  2. COREG [Concomitant]
  3. ASPIRIN [Concomitant]
  4. ASPIRIN [Concomitant]
  5. AVANDOMET [Concomitant]
  6. OXYBUTYNIN [Concomitant]
  7. OMEPRAZOLE [Concomitant]
  8. DITROPAN [Concomitant]
  9. ALPRAZOLAM [Concomitant]
  10. ALEVE [Concomitant]
  11. LANTUS [Concomitant]
  12. COZAAR [Concomitant]
  13. LISINOPRIL [Concomitant]
  14. DIGOXIN [Suspect]
     Dosage: (PO) (PO) (0.125; QD; PO)
     Route: 048
     Dates: start: 20020401
  15. DIGOXIN [Suspect]
     Dosage: (PO) (PO) (0.125; QD; PO)
     Route: 048
     Dates: start: 20050101
  16. DIGOXIN [Suspect]
     Dosage: (PO) (PO) (0.125; QD; PO)
     Route: 048
     Dates: start: 20040101
  17. QUININE [Concomitant]
  18. XANAX [Concomitant]
  19. ACTOS [Concomitant]
  20. AMARYL [Concomitant]
  21. LASIX [Concomitant]
  22. METOPROLOL TARTRATE [Concomitant]
  23. MELATONIN [Concomitant]
  24. LOPRESSOR [Concomitant]
  25. *RAGLAN [Concomitant]
  26. HYDROCODONE BITARTRATE [Concomitant]
  27. NEXIUM [Concomitant]
  28. ENALAPRIL [Concomitant]

REACTIONS (17)
  - CARDIOACTIVE DRUG LEVEL BELOW THERAPEUTIC [None]
  - SLEEP APNOEA SYNDROME [None]
  - CONGESTIVE CARDIOMYOPATHY [None]
  - VOMITING [None]
  - CORONARY ARTERY DISEASE [None]
  - UNEVALUABLE EVENT [None]
  - WEIGHT DECREASED [None]
  - UROSEPSIS [None]
  - DRY MOUTH [None]
  - CHILLS [None]
  - RENAL FAILURE ACUTE [None]
  - OBESITY [None]
  - ACUTE MYOCARDIAL INFARCTION [None]
  - OSTEOARTHRITIS [None]
  - ECONOMIC PROBLEM [None]
  - CALCULUS URETERIC [None]
  - PYREXIA [None]
